FAERS Safety Report 6649830-6 (Version None)
Quarter: 2010Q1

REPORT INFORMATION
  Report Type: 
  Country: None (occurrence: None)
  Receive Date: 20100325
  Receipt Date: 20100310
  Transmission Date: 20100710
  Serious: Yes (Other)
  Sender: FDA-Public Use
  Company Number: DE-MYLANLABS-2010S1004351

PATIENT
  Age: 68 Year
  Sex: Female
  Weight: 72 kg

DRUGS (3)
  1. METOPROLOL [Suspect]
     Indication: HYPERTENSION
     Dates: start: 20081202, end: 20090601
  2. RASILEZ /01763601/ [Concomitant]
     Indication: HYPERTENSION
     Dates: start: 20081003
  3. AMLODIPINE [Concomitant]
     Indication: HYPERTENSION
     Dates: start: 20081201

REACTIONS (4)
  - DEPRESSED MOOD [None]
  - EXERCISE TOLERANCE DECREASED [None]
  - NIGHTMARE [None]
  - OEDEMA PERIPHERAL [None]
